FAERS Safety Report 16750422 (Version 1)
Quarter: 2019Q3

REPORT INFORMATION
  Report Type: Spontaneous
  Country: US (occurrence: US)
  Receive Date: 20190710
  Receipt Date: 20190710
  Transmission Date: 20191005
  Serious: Yes (Other)
  Sender: FDA-Public Use
  Company Number: None

PATIENT
  Age: 85 Year
  Sex: Male
  Weight: 82.55 kg

DRUGS (1)
  1. CICLOPIROX OLAMINE. [Suspect]
     Active Substance: CICLOPIROX OLAMINE
     Indication: FUNGAL SKIN INFECTION
     Route: 061
     Dates: start: 20181006, end: 2019

REACTIONS (2)
  - Benign prostatic hyperplasia [None]
  - Prostatic specific antigen increased [None]

NARRATIVE: CASE EVENT DATE: 20190107
